FAERS Safety Report 9295415 (Version 1)
Quarter: 2013Q2

REPORT INFORMATION
  Report Type: Spontaneous
  Country: US (occurrence: US)
  Receive Date: 20130517
  Receipt Date: 20130517
  Transmission Date: 20140414
  Serious: No
  Sender: FDA-Public Use
  Company Number: US-PFIZER INC-2013149903

PATIENT
  Age: 62 Year
  Sex: Female
  Weight: 113 kg

DRUGS (4)
  1. CELEBREX [Suspect]
     Indication: ARTHRITIS
     Dosage: 200 MG, ONCE A DAY
     Route: 048
     Dates: start: 2010
  2. LYRICA [Concomitant]
     Dosage: UNK
  3. HYDROCHLOROTHIAZIDE WITH TRIAMTERENE [Concomitant]
     Indication: HYPERTENSION
     Dosage: 25/37.5MG, ONCE A DAY
  4. METOPROLOL [Concomitant]
     Dosage: 25 MG, TWO TIMES A DAY

REACTIONS (1)
  - Memory impairment [Unknown]
